FAERS Safety Report 12594321 (Version 1)
Quarter: 2016Q3

REPORT INFORMATION
  Report Type: Spontaneous
  Country: FR (occurrence: FR)
  Receive Date: 20160726
  Receipt Date: 20160726
  Transmission Date: 20161109
  Serious: Yes (Hospitalization)
  Sender: FDA-Public Use
  Company Number: FR-PFIZER INC-2016341278

PATIENT
  Age: 71 Year
  Sex: Female
  Weight: 75 kg

DRUGS (15)
  1. FLUOROURACILE ACCORD [Concomitant]
     Active Substance: FLUOROURACIL
     Indication: COLON CANCER
     Dosage: 4560 MG, UNK, AT DAY 1
     Route: 041
  2. BARACLUDE [Concomitant]
     Active Substance: ENTECAVIR
     Indication: CHRONIC HEPATITIS B
     Dosage: 0.5 MG, 1X/DAY
     Route: 048
  3. PRIMPERAN [Concomitant]
     Active Substance: METOCLOPRAMIDE HYDROCHLORIDE
     Indication: VOMITING
     Dosage: UNK, AS NEEDED
     Route: 048
  4. IMODIUM [Concomitant]
     Active Substance: LOPERAMIDE HYDROCHLORIDE
     Indication: DIARRHOEA
     Dosage: 2 MG, AS NEEDED
     Route: 048
  5. CALCIUM LEVOFOLINATE ZENTIVA [Concomitant]
     Active Substance: LEVOLEUCOVORIN CALCIUM
     Dosage: 328 MG, UNK, AT DAY 1
     Route: 041
  6. OXALIPLATIN HOSPIRA [Suspect]
     Active Substance: OXALIPLATIN
     Indication: COLON CANCER
     Dosage: 140 MG, UNK, AT DAY 1
     Route: 041
     Dates: start: 20160427
  7. FOLIC ACID. [Concomitant]
     Active Substance: FOLIC ACID
     Indication: COLON CANCER
     Dosage: 10 MG, WEEKLY
     Route: 048
  8. NOVATREX (METHOTREXATE) [Concomitant]
     Active Substance: METHOTREXATE SODIUM
     Indication: RHEUMATOID ARTHRITIS
     Dosage: 10 MG, WEEKLY
     Route: 048
  9. NISISCO [Concomitant]
     Active Substance: HYDROCHLOROTHIAZIDE\VALSARTAN
     Indication: HYPERTENSION
     Dosage: 1 DF, 1X/DAY
     Route: 048
  10. ONDANSETRON ACCORD [Concomitant]
     Active Substance: ONDANSETRON
     Dosage: 8 MG, UNK, AT DAY 1
     Route: 041
  11. TRUSOPT [Concomitant]
     Active Substance: DORZOLAMIDE HYDROCHLORIDE
     Indication: GLAUCOMA
     Dosage: 20 MG/ML, 2X/DAY
     Route: 047
  12. EMEND [Concomitant]
     Active Substance: APREPITANT
     Dosage: 125 MG, UNK, AT DAY 1
     Route: 048
  13. LUMIGAN [Concomitant]
     Active Substance: BIMATOPROST
     Indication: GLAUCOMA
     Dosage: 0.1 MG/ML, 1X/DAY
     Route: 047
  14. METHYLPREDNISOLONE MYLAN /00049602/ [Concomitant]
     Active Substance: METHYLPREDNISOLONE SODIUM SUCCINATE
     Dosage: 60 MG, UNK, AT DAY 1
     Route: 041
  15. INEXIUM /01479302/ [Concomitant]
     Active Substance: ESOMEPRAZOLE MAGNESIUM
     Dosage: 40 MG, 1X/DAY
     Route: 048

REACTIONS (3)
  - Dyspnoea [Recovered/Resolved]
  - Choking sensation [Recovered/Resolved]
  - Paraesthesia [Recovered/Resolved]

NARRATIVE: CASE EVENT DATE: 20160427
